FAERS Safety Report 9937218 (Version 1)
Quarter: 2014Q1

REPORT INFORMATION
  Report Type: Spontaneous
  Country: FR (occurrence: FR)
  Receive Date: 20140301
  Receipt Date: 20140301
  Transmission Date: 20141002
  Serious: Yes (Other)
  Sender: FDA-Public Use
  Company Number: PHHY2014FR022244

PATIENT
  Age: 53 Year
  Sex: Female

DRUGS (6)
  1. SULFADIAZINE [Suspect]
     Indication: CEREBRAL TOXOPLASMOSIS
  2. SULFADIAZINE [Suspect]
     Indication: ACQUIRED IMMUNODEFICIENCY SYNDROME
  3. LEUCOVORIN CALCIUM [Suspect]
     Indication: CEREBRAL TOXOPLASMOSIS
  4. LEUCOVORIN CALCIUM [Suspect]
     Indication: ACQUIRED IMMUNODEFICIENCY SYNDROME
  5. PYRIMETHAMINE [Suspect]
     Indication: CEREBRAL TOXOPLASMOSIS
  6. PYRIMETHAMINE [Suspect]
     Indication: ACQUIRED IMMUNODEFICIENCY SYNDROME

REACTIONS (2)
  - Drug-induced liver injury [Unknown]
  - Hepatic necrosis [Unknown]
